FAERS Safety Report 8080164 (Version 2)
Quarter: 2012Q4

REPORT INFORMATION
  Report Type: 
  Country: US (occurrence: US)
  Receive Date: 20110808
  Receipt Date: 20120907
  Transmission Date: 20130627
  Serious: Yes (Hospitalization, Congenital Anomaly)
  Sender: FDA-Public Use
  Company Number: US-GLAXOSMITHKLINE-A0929169A

PATIENT
  Age: 0 Year
  Sex: Male

DRUGS (3)
  1. PAXIL [Suspect]
     Indication: PRODUCT USED FOR UNKNOWN INDICATION
     Route: 064
  2. ZOFRAN [Concomitant]
     Route: 064
  3. VALTREX [Concomitant]
     Route: 064

REACTIONS (9)
  - Pulmonary valve stenosis congenital [Unknown]
  - Chronic hepatitis [Unknown]
  - Congenital genitourinary abnormality [Unknown]
  - Congenital renal disorder [Unknown]
  - Failure to thrive [Unknown]
  - Body height below normal [Unknown]
  - Hepatosplenomegaly [Unknown]
  - Cardiac disorder [Unknown]
  - Foetal exposure during pregnancy [Unknown]
